FAERS Safety Report 18061033 (Version 2)
Quarter: 2020Q3

REPORT INFORMATION
  Report Type: Spontaneous
  Country: US (occurrence: US)
  Receive Date: 20200723
  Receipt Date: 20200828
  Transmission Date: 20201103
  Serious: Yes (Other)
  Sender: FDA-Public Use
  Company Number: US-GILEAD-2020-0484332

PATIENT
  Age: 55 Year
  Sex: Female
  Weight: 71.2 kg

DRUGS (34)
  1. BIKTARVY [Concomitant]
     Active Substance: BICTEGRAVIR SODIUM\EMTRICITABINE\TENOFOVIR ALAFENAMIDE FUMARATE
  2. OMEPRAZOLE. [Concomitant]
     Active Substance: OMEPRAZOLE
  3. AMMONIUM LACTATE. [Concomitant]
     Active Substance: AMMONIUM LACTATE
  4. MAPAP [Concomitant]
     Active Substance: ACETAMINOPHEN
  5. LEVOFLOXACIN. [Concomitant]
     Active Substance: LEVOFLOXACIN
  6. TIVICAY [Concomitant]
     Active Substance: DOLUTEGRAVIR SODIUM
  7. CYCLOBENZAPRINE. [Concomitant]
     Active Substance: CYCLOBENZAPRINE
  8. DOCUSATE [Concomitant]
     Active Substance: DOCUSATE
  9. CALCIUM 600 + D [Concomitant]
     Active Substance: CALCIUM\VITAMIN D
  10. COUMADIN [Concomitant]
     Active Substance: WARFARIN SODIUM
  11. IPRATROPIUM [Concomitant]
     Active Substance: IPRATROPIUM
  12. DOXYCYCLINE HCL [Concomitant]
     Active Substance: DOXYCYCLINE HYDROCHLORIDE
  13. KETOCONAZOLE. [Concomitant]
     Active Substance: KETOCONAZOLE
  14. CENTRAL?VITE [Concomitant]
  15. CLINDAMYCIN. [Concomitant]
     Active Substance: CLINDAMYCIN
  16. DESCOVY [Concomitant]
     Active Substance: EMTRICITABINE\TENOFOVIR ALAFENAMIDE FUMARATE
  17. PRAVASTATIN. [Concomitant]
     Active Substance: PRAVASTATIN
  18. METRONIDAZOLE. [Concomitant]
     Active Substance: METRONIDAZOLE
  19. AMOXICILLIN SODIUM;AMOXICILLIN TRIHYDRATE;CLAVULANATE POTASSIUM [Concomitant]
     Active Substance: AMOXICILLIN\CLAVULANATE POTASSIUM
  20. BENZONATATE. [Concomitant]
     Active Substance: BENZONATATE
  21. FOSAMPRENAVIR CALCIUM. [Concomitant]
     Active Substance: FOSAMPRENAVIR CALCIUM
  22. COMPLERA [Suspect]
     Active Substance: EMTRICITABINE\RILPIVIRINE HYDROCHLORIDE\TENOFOVIR DISOPROXIL FUMARATE
     Indication: HIV INFECTION
     Route: 065
  23. CETIRIZINE [Concomitant]
     Active Substance: CETIRIZINE HYDROCHLORIDE
  24. FLUTICASONE PROPIONATE. [Concomitant]
     Active Substance: FLUTICASONE PROPIONATE
  25. LEXIVA [Concomitant]
     Active Substance: FOSAMPRENAVIR CALCIUM
  26. ALBUTEROL HFA [Concomitant]
     Active Substance: ALBUTEROL SULFATE
  27. VALACYCLOVIR HCL [Concomitant]
     Active Substance: VALACYCLOVIR HYDROCHLORIDE
  28. LORATADINE. [Concomitant]
     Active Substance: LORATADINE
  29. TRAMADOL. [Concomitant]
     Active Substance: TRAMADOL
  30. FAMOTIDINE. [Concomitant]
     Active Substance: FAMOTIDINE
  31. MICONAZOLE. [Concomitant]
     Active Substance: MICONAZOLE
  32. NICORELIEF [Concomitant]
     Active Substance: NICOTINE
  33. TRUVADA [Suspect]
     Active Substance: EMTRICITABINE\TENOFOVIR DISOPROXIL FUMARATE
     Indication: HIV INFECTION
     Dosage: UNK
     Route: 065
     Dates: start: 20130813, end: 20171227
  34. TRIZIVIR [Concomitant]
     Active Substance: ABACAVIR SULFATE\LAMIVUDINE\ZIDOVUDINE

REACTIONS (8)
  - Fracture [Not Recovered/Not Resolved]
  - Gait disturbance [Not Recovered/Not Resolved]
  - Bone density decreased [Not Recovered/Not Resolved]
  - Osteopenia [Not Recovered/Not Resolved]
  - Osteoporosis [Not Recovered/Not Resolved]
  - Blood creatinine increased [Not Recovered/Not Resolved]
  - Emotional distress [Recovered/Resolved]
  - Pain [Recovered/Resolved]

NARRATIVE: CASE EVENT DATE: 201801
